FAERS Safety Report 5286442-3 (Version None)
Quarter: 2007Q1

REPORT INFORMATION
  Report Type: 
  Country: None (occurrence: None)
  Receive Date: 20070116
  Receipt Date: 20060913
  Transmission Date: 20070707
  Serious: No
  Sender: FDA-Public Use
  Company Number: 2006SP003276

PATIENT
  Age: 56 Year
  Sex: Female
  Weight: 88.4514 kg

DRUGS (5)
  1. LUNESTA [Suspect]
     Dosage: SEE IMAGE
     Route: 048
     Dates: start: 20060701, end: 20060101
  2. LUNESTA [Suspect]
     Dosage: SEE IMAGE
     Route: 048
     Dates: start: 20060901, end: 20060901
  3. LUNESTA [Suspect]
     Dosage: SEE IMAGE
     Route: 048
     Dates: start: 20060901, end: 20060901
  4. LUNESTA [Suspect]
     Dosage: SEE IMAGE
     Route: 048
     Dates: start: 20060901, end: 20061001
  5. ULTRAM [Concomitant]

REACTIONS (7)
  - DRUG INEFFECTIVE [None]
  - DRY SKIN [None]
  - DYSGEUSIA [None]
  - HAIR TEXTURE ABNORMAL [None]
  - HEADACHE [None]
  - MIDDLE INSOMNIA [None]
  - RESTLESS LEGS SYNDROME [None]
